FAERS Safety Report 12113626 (Version 2)
Quarter: 2016Q1

REPORT INFORMATION
  Report Type: Report from Study
  Country: CA (occurrence: CA)
  Receive Date: 20160225
  Receipt Date: 20160318
  Transmission Date: 20160526
  Serious: Yes (Other)
  Sender: FDA-Public Use
  Company Number: PHHY2016CA018972

PATIENT
  Sex: Female

DRUGS (6)
  1. VITAMIN D [Concomitant]
     Active Substance: CHOLECALCIFEROL
     Indication: PRODUCT USED FOR UNKNOWN INDICATION
     Route: 065
  2. VENOFER [Concomitant]
     Active Substance: IRON SUCROSE
     Indication: PRODUCT USED FOR UNKNOWN INDICATION
     Route: 065
  3. SANDOSTATIN LAR DEPOT [Suspect]
     Active Substance: OCTREOTIDE ACETATE
     Indication: OCCULT BLOOD
  4. SANDOSTATIN LAR DEPOT [Suspect]
     Active Substance: OCTREOTIDE ACETATE
     Indication: ANAEMIA
     Dosage: 10 MG, QMO (EVERY 4 WEEKS)
     Route: 030
     Dates: start: 20151105
  5. SANDOSTATIN [Suspect]
     Active Substance: OCTREOTIDE ACETATE
     Indication: ANAEMIA
     Dosage: FOR 5 DAYS, BID
     Route: 058
     Dates: start: 201510, end: 201510
  6. SANDOSTATIN [Suspect]
     Active Substance: OCTREOTIDE ACETATE
     Indication: OCCULT BLOOD

REACTIONS (13)
  - Visual impairment [Unknown]
  - Macular degeneration [Unknown]
  - Product use issue [Unknown]
  - Feeling abnormal [Unknown]
  - Diarrhoea [Unknown]
  - Constipation [Unknown]
  - Musculoskeletal pain [Unknown]
  - Back pain [Recovering/Resolving]
  - Tremor [Not Recovered/Not Resolved]
  - Pain [Unknown]
  - Amnesia [Unknown]
  - Nervous system disorder [Unknown]
  - Abdominal pain upper [Recovering/Resolving]
